FAERS Safety Report 8587658-0 (Version None)
Quarter: 2012Q3

REPORT INFORMATION
  Report Type: 
  Country: None (occurrence: None)
  Receive Date: 20120812
  Receipt Date: 20120807
  Transmission Date: 20120928
  Serious: No
  Sender: FDA-Public Use
  Company Number: US-009507513-1208USA003327

PATIENT

DRUGS (1)
  1. NUVARING [Suspect]
     Indication: CONTRACEPTION
     Dosage: 0.120/0.015 MG PER DAY
     Route: 067
     Dates: start: 20120301

REACTIONS (2)
  - NO ADVERSE EVENT [None]
  - DEVICE BREAKAGE [None]
